FAERS Safety Report 5268103-X (Version None)
Quarter: 2007Q1

REPORT INFORMATION
  Report Type: 
  Country: None (occurrence: None)
  Receive Date: 20070319
  Receipt Date: 20070306
  Transmission Date: 20070707
  Serious: Yes (Other)
  Sender: FDA-Public Use
  Company Number: PHBS2007BR04262

PATIENT
  Age: 76 Year
  Sex: Female
  Weight: 55 kg

DRUGS (12)
  1. SLOW-K [Suspect]
     Indication: ELECTROLYTE SUBSTITUTION THERAPY
     Dates: start: 20070307
  2. POTASSIUM CHLORIDE [Suspect]
     Indication: ELECTROLYTE SUBSTITUTION THERAPY
     Dates: start: 20070205
  3. INSULIN HUMAN [Concomitant]
     Indication: DIABETES MELLITUS
     Dosage: 28 UNITS/MORNING, 14 UNITS/17 O'CLOCK
     Route: 058
     Dates: start: 20060101
  4. CAPTOPRIL [Concomitant]
     Indication: HYPERTENSION
     Dosage: 1 TABLET/DAY
     Route: 048
  5. MACRODANTINA [Concomitant]
     Indication: RENAL CYST
     Dosage: 2 TABLETS/DAY
     Route: 048
  6. PLAVIX [Concomitant]
     Indication: CEREBROVASCULAR DISORDER
     Dosage: 1 DF, QD
     Dates: start: 20050101
  7. INDAPAMIDE [Concomitant]
     Indication: HYPERTENSION
     Dosage: 1.5 MG, QD
  8. DIGOXIN [Concomitant]
     Indication: ARRHYTHMIA
     Dates: start: 20050101
  9. OMEPRAZOLE [Concomitant]
  10. AMPLICTIL [Concomitant]
     Indication: SLEEP DISORDER
     Dosage: UNK, IRD
  11. AMITRIPTYLINE HCL [Concomitant]
     Indication: DEPRESSION
     Dosage: 2 TABLETS AT NIGHT
     Dates: start: 20060101
  12. TEGRETOL [Suspect]
     Indication: CONVULSION
     Dosage: 200 MG, QD
     Route: 048
     Dates: start: 20060101

REACTIONS (12)
  - ARRHYTHMIA [None]
  - BILIARY COLIC [None]
  - BLOOD GLUCOSE DECREASED [None]
  - BLOOD GLUCOSE FLUCTUATION [None]
  - BLOOD POTASSIUM DECREASED [None]
  - BLOOD PRESSURE FLUCTUATION [None]
  - CEREBRAL HAEMORRHAGE [None]
  - CEREBRAL ISCHAEMIA [None]
  - DEHYDRATION [None]
  - DYSPHAGIA [None]
  - RESPIRATORY FAILURE [None]
  - VOMITING [None]
